FAERS Safety Report 6504795-2 (Version None)
Quarter: 2009Q4

REPORT INFORMATION
  Report Type: 
  Country: None (occurrence: None)
  Receive Date: 20091216
  Receipt Date: 20091209
  Transmission Date: 20100525
  Serious: Yes (Death)
  Sender: FDA-Public Use
  Company Number: 2009JP006552

PATIENT
  Age: 58 Year
  Sex: Female
  Weight: 56.8 kg

DRUGS (20)
  1. FUNGUARD (MICAFUNGIN) INJECTION [Suspect]
     Indication: INFECTION PROPHYLAXIS
     Dosage: 50 MG, UID/ QD, IV DRIP
     Route: 041
     Dates: start: 20090313, end: 20090322
  2. ALKERAN [Concomitant]
  3. CYCLOPHOSPHAMIDE [Concomitant]
  4. VEPRSID (ETOPOSIDE) INJECTION [Concomitant]
  5. DECADRON [Concomitant]
  6. UROMITEXAN (MESNA) INJECTION [Concomitant]
  7. NEUTROGIN (LENOGRASTIM) INJECTION [Concomitant]
  8. HAPTOGLOBINS (HAPTOGLOBINS) INJECTION [Concomitant]
  9. SOLU-MEDROL [Concomitant]
  10. MAXIPIME [Concomitant]
  11. HABEKACIN (ARBEKACIN) INJECTION [Concomitant]
  12. GASTER (FAMOTIDINE) FORMULATION UNKNOWN [Concomitant]
  13. GASLON N (IRSOGLADINE MALEATE) PER ORAL [Concomitant]
  14. BAKTAR (SULFAMETHOXAZOLE, TRIMETHOPRIM) TABLET [Concomitant]
  15. GARENOXACIN (GARENOXACIN) PER ORAL NOS [Concomitant]
  16. URALYT (SOLIDAGO VIRGAUREA) TABLET [Concomitant]
  17. DIAMOX (ACETAZOLAMIDE) PER ORAL [Concomitant]
  18. METHYCOBAL (MECOBALAMIN) PER ORAL [Concomitant]
  19. MIYA BM (CLOSTRIDIUM BUTYRICUM) PER ORAL [Concomitant]
  20. LENDORMIN (BROTIZOLAM) PER ORAL [Concomitant]

REACTIONS (6)
  - BACTERIAL INFECTION [None]
  - ENGRAFT FAILURE [None]
  - INFECTION [None]
  - NEUTROPHIL COUNT DECREASED [None]
  - STEM CELL TRANSPLANT [None]
  - WHITE BLOOD CELL COUNT DECREASED [None]
